FAERS Safety Report 8023113 (Version 3)
Quarter: 2013Q1

REPORT INFORMATION
  Report Type: Report from Study
  Country: US (occurrence: US)
  Receive Date: 20110706
  Receipt Date: 20130117
  Transmission Date: 20140127
  Serious: Yes (Other)
  Sender: FDA-Public Use
  Company Number: US-RB-029633-11

PATIENT
  Age: 46 Year
  Sex: Female

DRUGS (3)
  1. SUBUTEX [Suspect]
     Indication: DRUG DEPENDENCE
     Dosage: DOSAGE 4-8 MG DAILY.
     Route: 060
     Dates: start: 2011, end: 2011
  2. SUBOXONE FILM [Suspect]
     Indication: DRUG DEPENDENCE
     Dosage: SUBOXONE SUBLINGUAL FILM
     Route: 065
     Dates: start: 2010, end: 2011
  3. SUBOXONE FILM [Suspect]
     Dosage: SUBOXONE SUBLINGUAL FILM, 4-8 MG DAILY
     Route: 060
     Dates: start: 2011

REACTIONS (6)
  - Abortion spontaneous [Recovered/Resolved]
  - Vaginal haemorrhage [Recovered/Resolved]
  - Substance abuse [Recovered/Resolved]
  - Influenza [Recovered/Resolved]
  - Asthenia [Recovered/Resolved]
  - Exposure during pregnancy [Recovered/Resolved]
